FAERS Safety Report 9183110 (Version 1)
Quarter: 2013Q1

REPORT INFORMATION
  Report Type: Spontaneous
  Country: US (occurrence: US)
  Receive Date: 20130322
  Receipt Date: 20130322
  Transmission Date: 20140127
  Serious: No
  Sender: FDA-Public Use
  Company Number: US-BRISTOL-MYERS SQUIBB COMPANY-16381758

PATIENT
  Age: 67 Year
  Sex: Male
  Weight: 72 kg

DRUGS (10)
  1. ERBITUX [Suspect]
     Indication: LARYNGEAL CANCER
  2. MINOXIDIL [Concomitant]
  3. BUPROPION HCL [Concomitant]
  4. LISINOPRIL + HCTZ [Concomitant]
     Dosage: 1 DF: 10/12.5MG
  5. LEVOTHYROXINE [Concomitant]
  6. ALLOPURINOL [Concomitant]
  7. SIMVASTATIN [Concomitant]
  8. PREDNISOLONE [Concomitant]
  9. ATORVASTATIN [Concomitant]
  10. ASPIRIN [Concomitant]

REACTIONS (1)
  - Rash papular [Unknown]
